FAERS Safety Report 13104567 (Version 1)
Quarter: 2017Q1

REPORT INFORMATION
  Report Type: Spontaneous
  Country: US (occurrence: US)
  Receive Date: 20170110
  Receipt Date: 20170110
  Transmission Date: 20170428
  Serious: Yes (Congenital Anomaly)
  Sender: FDA-Public Use
  Company Number: None

PATIENT
  Age: 0 Day
  Sex: Female
  Weight: 3.6 kg

DRUGS (5)
  1. HUMIRA [Concomitant]
     Active Substance: ADALIMUMAB
  2. 6-MP [Concomitant]
     Active Substance: MERCAPTOPURINE
  3. COLAZAL [Suspect]
     Active Substance: BALSALAZIDE DISODIUM
     Route: 048
  4. CANASA [Suspect]
     Active Substance: MESALAMINE
     Indication: CROHN^S DISEASE
     Route: 054
     Dates: start: 20141201, end: 20150108
  5. PREDNISONE. [Concomitant]
     Active Substance: PREDNISONE

REACTIONS (5)
  - Maternal drugs affecting foetus [None]
  - Arterial disorder [None]
  - Maternal exposure during pregnancy [None]
  - Atrial septal defect [None]
  - Enteric duplication [None]

NARRATIVE: CASE EVENT DATE: 20150108
